FAERS Safety Report 4967687-6 (Version None)
Quarter: 2006Q2

REPORT INFORMATION
  Report Type: 
  Country: None (occurrence: None)
  Receive Date: 20060410
  Receipt Date: 20050816
  Transmission Date: 20061013
  Serious: Yes (Hospitalization, Other)
  Sender: FDA-Public Use
  Company Number: US-MERCK-0508USA03064

PATIENT
  Age: 74 Year
  Sex: Female
  Weight: 58 kg

DRUGS (46)
  1. VIOXX [Suspect]
     Indication: ARTHRALGIA
     Route: 048
     Dates: start: 19980101, end: 20040101
  2. ASPIRIN [Concomitant]
     Route: 065
  3. TRICOR [Concomitant]
     Route: 065
  4. PRAVACHOL [Concomitant]
     Route: 065
  5. CARDIZEM [Concomitant]
     Route: 065
  6. PREMARIN [Concomitant]
     Route: 065
  7. NEURONTIN [Concomitant]
     Route: 065
  8. NYSTATIN [Concomitant]
     Route: 065
  9. GEN-MEDROXY [Concomitant]
     Route: 065
  10. FLURAZEPAM [Concomitant]
     Route: 065
  11. CIMETIDINE [Concomitant]
     Route: 065
  12. ATENOLOL [Concomitant]
     Route: 065
  13. SALAGEN [Concomitant]
     Route: 065
  14. MICARDIS [Concomitant]
     Route: 065
  15. ACYCLOVIR [Concomitant]
     Route: 065
  16. BIAXIN [Concomitant]
     Route: 065
  17. ACCOLATE [Concomitant]
     Route: 065
  18. ALPRAZOLAM [Concomitant]
     Route: 065
  19. TUSSIONEX (CHLORPHENIRAMINE POLISTIREX (+) HYDROCODONE POLISTIREX) [Concomitant]
     Route: 065
  20. FAMVIR [Concomitant]
     Route: 065
  21. AZMACORT [Concomitant]
     Route: 065
  22. PROVENTIL [Concomitant]
     Route: 065
  23. INTAL [Concomitant]
     Route: 065
  24. ERYTHROMYCIN [Concomitant]
     Route: 065
  25. TOBRADEX [Concomitant]
     Route: 065
  26. TESTRED [Concomitant]
     Route: 065
  27. OCUFLOX [Concomitant]
     Route: 065
  28. CIPRO [Concomitant]
     Route: 065
  29. CLARITIN [Concomitant]
     Route: 065
  30. SULFAMETHOXAZOLE [Concomitant]
     Route: 065
  31. VANCENASE [Concomitant]
     Route: 065
  32. AVAPRO [Concomitant]
     Route: 065
  33. COZAAR [Concomitant]
     Route: 065
  34. PROPOXYPHENE HYDROCHLORIDE [Concomitant]
     Route: 065
  35. PRAVACHOL [Concomitant]
     Route: 065
  36. PREDNISONE [Concomitant]
     Route: 065
  37. COUMADIN [Concomitant]
     Route: 065
  38. LOVENOX [Concomitant]
     Route: 065
  39. WELCHOL [Concomitant]
     Route: 065
  40. MAXAIR [Concomitant]
     Route: 065
  41. ESTRACE [Concomitant]
     Route: 065
  42. SINGULAIR [Concomitant]
     Route: 065
  43. PROMETHAZINE W/DM [Concomitant]
     Route: 065
  44. CLONAZEPAM [Concomitant]
     Route: 065
  45. PREVACID [Concomitant]
     Route: 065
  46. NEXIUM [Concomitant]
     Route: 065

REACTIONS (25)
  - ACUTE MYOCARDIAL INFARCTION [None]
  - ARTHRALGIA [None]
  - CAROTID ARTERY OCCLUSION [None]
  - CAROTID ARTERY THROMBOSIS [None]
  - CEREBRAL INFARCTION [None]
  - CEREBROVASCULAR ACCIDENT [None]
  - CERVIX DISORDER [None]
  - CORONARY ARTERY DISEASE [None]
  - DRUG INTOLERANCE [None]
  - DRY MOUTH [None]
  - EMBOLIC CEREBRAL INFARCTION [None]
  - EYE DISORDER [None]
  - FACET JOINT SYNDROME [None]
  - GASTROOESOPHAGEAL REFLUX DISEASE [None]
  - HYPERLIPIDAEMIA [None]
  - HYPERTENSION [None]
  - INTERVERTEBRAL DISC DEGENERATION [None]
  - METRORRHAGIA [None]
  - OSTEOARTHRITIS [None]
  - RESTLESS LEGS SYNDROME [None]
  - SHOULDER PAIN [None]
  - STRESS INCONTINENCE [None]
  - SUPRAVENTRICULAR TACHYCARDIA [None]
  - URINARY INCONTINENCE [None]
  - VAGINAL REMOVAL OF INTRAUTERINE FOREIGN BODY [None]
